FAERS Safety Report 6491929-1 (Version None)
Quarter: 2009Q4

REPORT INFORMATION
  Report Type: 
  Country: None (occurrence: None)
  Receive Date: 20091208
  Receipt Date: 20091201
  Transmission Date: 20100525
  Serious: Yes (Other)
  Sender: FDA-Public Use
  Company Number: 2009AL007587

PATIENT
  Age: 54 Year
  Sex: Female

DRUGS (4)
  1. LIDOCAINE HYDROCHLORIDE 2% [Suspect]
     Dosage: QD, TOP
     Route: 061
     Dates: start: 20090924, end: 20091026
  2. TEVETEN [Concomitant]
  3. EPILIM CHRONO [Concomitant]
  4. BENDROFLUMETHIAZIDE [Concomitant]

REACTIONS (2)
  - NEPHRITIS [None]
  - RENAL FAILURE [None]
